FAERS Safety Report 8322981-6 (Version None)
Quarter: 2012Q2

REPORT INFORMATION
  Report Type: 
  Country: None (occurrence: None)
  Receive Date: 20120430
  Receipt Date: 20120426
  Transmission Date: 20120825
  Serious: Yes (Congenital Anomaly, Other)
  Sender: FDA-Public Use
  Company Number: US-PFIZER INC-2012103234

PATIENT
  Sex: Male

DRUGS (3)
  1. TRAZODONE [Concomitant]
     Dosage: 100MG
     Route: 064
  2. SEROQUEL [Concomitant]
     Dosage: 400MG
     Route: 064
  3. ZOLOFT [Suspect]
     Indication: DEPRESSION
     Dosage: 100 MG, 2X/DAY
     Route: 064
     Dates: start: 19990101

REACTIONS (4)
  - MATERNAL EXPOSURE TIMING UNSPECIFIED [None]
  - DYSPNOEA [None]
  - CONGENITAL ANOMALY [None]
  - FOETAL DAMAGE [None]
